FAERS Safety Report 10252671 (Version 1)
Quarter: 2014Q2

REPORT INFORMATION
  Report Type: Spontaneous
  Country: US (occurrence: None)
  Receive Date: 20140620
  Receipt Date: 20140620
  Transmission Date: 20141212
  Serious: Yes (Other)
  Sender: FDA-Public Use
  Company Number: None

PATIENT
  Age: 42 Year
  Sex: Male

DRUGS (1)
  1. ESCITALOPRAM [Suspect]
     Indication: AUTISM

REACTIONS (3)
  - Aggression [None]
  - Product substitution issue [None]
  - Abnormal behaviour [None]
